FAERS Safety Report 8227508-5 (Version None)
Quarter: 2012Q1

REPORT INFORMATION
  Report Type: 
  Country: None (occurrence: None)
  Receive Date: 20120322
  Receipt Date: 20120313
  Transmission Date: 20120608
  Serious: Yes (Hospitalization, Other)
  Sender: FDA-Public Use
  Company Number: PHHY2012DK022895

PATIENT
  Age: 20 Year
  Sex: Male

DRUGS (2)
  1. TRUXAL [Concomitant]
  2. METHYLPHENIDATE [Suspect]
     Indication: ATTENTION DEFICIT/HYPERACTIVITY DISORDER
     Dosage: 10 MG, DAILY
     Route: 048

REACTIONS (6)
  - CHEST PAIN [None]
  - PERICARDITIS [None]
  - MYOCARDITIS [None]
  - PULMONARY EMBOLISM [None]
  - CHRONIC OBSTRUCTIVE PULMONARY DISEASE [None]
  - TOXICITY TO VARIOUS AGENTS [None]
